FAERS Safety Report 20941905 (Version 1)
Quarter: 2022Q2

REPORT INFORMATION
  Report Type: Spontaneous
  Country: AU (occurrence: AU)
  Receive Date: 20220610
  Receipt Date: 20220610
  Transmission Date: 20220721
  Serious: Yes (Death, Hospitalization)
  Sender: FDA-Public Use
  Company Number: AU-STRIDES ARCOLAB LIMITED-2022SP006702

PATIENT
  Age: 33 Year
  Sex: Male

DRUGS (3)
  1. OXYCODONE [Suspect]
     Active Substance: OXYCODONE
     Indication: Headache
     Dosage: 80 MILLIGRAM, TWICE A DAY
     Route: 048
  2. MORPHINE [Suspect]
     Active Substance: MORPHINE
     Indication: Headache
     Dosage: 20-40 MILLIGRAM
     Route: 048
  3. GABAPENTIN [Suspect]
     Active Substance: GABAPENTIN
     Indication: Headache
     Dosage: UNK
     Route: 065

REACTIONS (5)
  - Depressed level of consciousness [Fatal]
  - Pneumonia aspiration [Fatal]
  - Toxicity to various agents [Fatal]
  - Respiratory depression [Fatal]
  - Product communication issue [Unknown]
